FAERS Safety Report 5564060-7 (Version None)
Quarter: 2007Q4

REPORT INFORMATION
  Report Type: 
  Country: None (occurrence: None)
  Receive Date: 20071217
  Receipt Date: 20071210
  Transmission Date: 20080405
  Serious: Yes (Other)
  Sender: FDA-Public Use
  Company Number: US-BOEHRINGER INGELHEIM PHARMACEUTICALS, INC.-2007-BP-26070PF

PATIENT
  Sex: Male
  Weight: 91 kg

DRUGS (9)
  1. SPIRIVA [Suspect]
  2. CHANTIX [Suspect]
     Indication: SMOKING CESSATION THERAPY
     Dates: start: 20070101
  3. ALBUTEROL [Concomitant]
  4. ASPIRIN [Concomitant]
  5. PRILOSEC [Concomitant]
  6. PREVACID [Concomitant]
  7. SINGULAIR [Concomitant]
  8. CRESTOR [Concomitant]
  9. REGULAR VITAMINS [Concomitant]

REACTIONS (9)
  - ABNORMAL DREAMS [None]
  - BLOOD CAFFEINE INCREASED [None]
  - BLOOD PRESSURE INCREASED [None]
  - DYSPNOEA [None]
  - FLATULENCE [None]
  - PAROSMIA [None]
  - SLEEP APNOEA SYNDROME [None]
  - SLEEP DISORDER [None]
  - STRESS [None]
